FAERS Safety Report 6402008-3 (Version None)
Quarter: 2009Q4

REPORT INFORMATION
  Report Type: 
  Country: None (occurrence: None)
  Receive Date: 20091015
  Receipt Date: 20090922
  Transmission Date: 20100525
  Serious: Yes (Congenital Anomaly)
  Sender: FDA-Public Use
  Company Number: US-ABBOTT-09P-163-0598720-00

PATIENT
  Sex: Male
  Weight: 4.1 kg

DRUGS (1)
  1. KALETRA [Suspect]
     Indication: DRUG EXPOSURE DURING PREGNANCY
     Route: 064

REACTIONS (5)
  - CARDIAC VENTRICULAR DISORDER [None]
  - DRUG EXPOSURE DURING PREGNANCY [None]
  - NORMAL NEWBORN [None]
  - POLYHYDRAMNIOS [None]
  - PREMATURE SEPARATION OF PLACENTA [None]
